FAERS Safety Report 5445442-0 (Version None)
Quarter: 2007Q3

REPORT INFORMATION
  Report Type: 
  Country: None (occurrence: None)
  Receive Date: 20070906
  Receipt Date: 20070829
  Transmission Date: 20080115
  Serious: Yes (Disabling)
  Sender: FDA-Public Use
  Company Number: GB-PFIZER INC-2007072105

PATIENT
  Age: 65 Year
  Sex: Male

DRUGS (7)
  1. LINEZOLID [Suspect]
     Indication: OSTEOMYELITIS
     Route: 048
     Dates: start: 20070501, end: 20070701
  2. ASPIRIN [Concomitant]
  3. FELODIPINE [Concomitant]
  4. NOVOMIX [Concomitant]
  5. PERINDOPRIL ERBUMINE [Concomitant]
  6. PRAVASTATIN [Concomitant]
  7. RAMIPRIL [Concomitant]

REACTIONS (1)
  - VISUAL DISTURBANCE [None]
